FAERS Safety Report 7981966-X (Version None)
Quarter: 2011Q4

REPORT INFORMATION
  Report Type: 
  Country: None (occurrence: None)
  Receive Date: 20111215
  Receipt Date: 20111205
  Transmission Date: 20120403
  Serious: Yes (Hospitalization)
  Sender: FDA-Public Use
  Company Number: JP-CELGENEUS-087-21880-11072781

PATIENT
  Sex: Male

DRUGS (6)
  1. REVLIMID [Suspect]
     Indication: MULTIPLE MYELOMA
     Dosage: 15 MILLIGRAM
     Route: 048
     Dates: start: 20110315, end: 20110329
  2. REVLIMID [Suspect]
     Dosage: 5 MILLIGRAM
     Route: 048
     Dates: start: 20110701
  3. REVLIMID [Suspect]
     Route: 048
     Dates: start: 20110511, end: 20110701
  4. REVLIMID [Suspect]
     Dosage: 15 MILLIGRAM
     Route: 048
     Dates: start: 20110331, end: 20110404
  5. DEXAMETHASONE ACETATE [Suspect]
     Indication: MULTIPLE MYELOMA
     Dosage: 20 MILLIGRAM
     Route: 048
     Dates: start: 20110315, end: 20110403
  6. FENTANYL-100 [Concomitant]
     Indication: MULTIPLE MYELOMA
     Dosage: 4.2 MILLIGRAM
     Route: 062

REACTIONS (3)
  - C-REACTIVE PROTEIN INCREASED [None]
  - HEPATIC FUNCTION ABNORMAL [None]
  - BLOOD IMMUNOGLOBULIN G INCREASED [None]
